FAERS Safety Report 6834488-3 (Version None)
Quarter: 2010Q3

REPORT INFORMATION
  Report Type: 
  Country: None (occurrence: None)
  Receive Date: 20100712
  Receipt Date: 20070416
  Transmission Date: 20110219
  Serious: No
  Sender: FDA-Public Use
  Company Number: US-PFIZER INC-2007031305

PATIENT
  Sex: Female
  Weight: 58.97 kg

DRUGS (9)
  1. CHANTIX [Suspect]
     Indication: SMOKING CESSATION THERAPY
     Dates: start: 20070207
  2. ALTACE [Concomitant]
  3. ADVICOR [Concomitant]
  4. ADVICOR [Concomitant]
  5. COREG [Concomitant]
  6. ALL OTHER THERAPEUTIC PRODUCTS [Concomitant]
  7. LANOXIN [Concomitant]
  8. VITAMIN C [Concomitant]
  9. UBIDECARENONE [Concomitant]

REACTIONS (5)
  - CONJUNCTIVITIS [None]
  - DRUG INEFFECTIVE [None]
  - EAR INFECTION [None]
  - VERTIGO [None]
  - VOMITING [None]
